FAERS Safety Report 8483600-1 (Version None)
Quarter: 2012Q3

REPORT INFORMATION
  Report Type: 
  Country: None (occurrence: None)
  Receive Date: 20120702
  Receipt Date: 20120627
  Transmission Date: 20120928
  Serious: Yes (Hospitalization, Disabling, Other)
  Sender: FDA-Public Use
  Company Number: US-MERCK-1203USA03426

PATIENT
  Age: 39 Year
  Sex: Female
  Weight: 63 kg

DRUGS (7)
  1. FOSAMAX [Suspect]
     Route: 048
     Dates: end: 20030901
  2. FOSAMAX [Suspect]
     Indication: OSTEOPOROSIS
     Route: 048
     Dates: start: 19970701
  3. FOSAMAX [Suspect]
     Route: 048
     Dates: start: 20010601, end: 20030101
  4. ALENDRONATE SODIUM [Suspect]
     Indication: OSTEOPOROSIS
     Route: 048
     Dates: start: 19950101
  5. ALENDRONATE SODIUM [Suspect]
     Route: 048
     Dates: start: 20091001, end: 20100701
  6. FOSAMAX [Suspect]
     Route: 048
     Dates: end: 20060701
  7. BONIVA [Suspect]
     Indication: OSTEOPOROSIS
     Route: 048
     Dates: start: 20060601, end: 20090601

REACTIONS (29)
  - ANXIETY [None]
  - CONSTIPATION [None]
  - BLOOD CHOLESTEROL INCREASED [None]
  - DEPRESSION [None]
  - ARTHROPATHY [None]
  - CARDIOMEGALY [None]
  - FALL [None]
  - MENORRHAGIA [None]
  - VITAMIN D DEFICIENCY [None]
  - MULTIPLE FRACTURES [None]
  - OSTEOPOROSIS [None]
  - DYSPHAGIA [None]
  - POOR QUALITY SLEEP [None]
  - SYNOVIAL CYST [None]
  - BLADDER FIBROSIS [None]
  - BONE DENSITY DECREASED [None]
  - UTERINE DISORDER [None]
  - ARTHRALGIA [None]
  - NEPHROLITHIASIS [None]
  - BREAST CALCIFICATIONS [None]
  - STRESS URINARY INCONTINENCE [None]
  - ENDOMETRIAL DISORDER [None]
  - BALANCE DISORDER [None]
  - WEIGHT DECREASED [None]
  - ROTATOR CUFF SYNDROME [None]
  - FEMUR FRACTURE [None]
  - BLADDER TRANSITIONAL CELL CARCINOMA [None]
  - SCHIZOPHRENIA [None]
  - TOOTH DISORDER [None]
